FAERS Safety Report 18776023 (Version 1)
Quarter: 2021Q1

REPORT INFORMATION
  Report Type: Spontaneous
  Country: US (occurrence: US)
  Receive Date: 20210122
  Receipt Date: 20210122
  Transmission Date: 20210419
  Serious: Yes (Death, Other)
  Sender: FDA-Public Use
  Company Number: US-ASTRAZENECA-2021A010814

PATIENT
  Age: 22288 Day
  Sex: Female

DRUGS (17)
  1. CALCIUM [Concomitant]
     Active Substance: CALCIUM
  2. OMEGA 3 [Concomitant]
     Active Substance: OMEGA-3 FATTY ACIDS
  3. NIFEDIPINE. [Concomitant]
     Active Substance: NIFEDIPINE
  4. TRULICITY [Concomitant]
     Active Substance: DULAGLUTIDE
  5. INSULIN GLARGINE [Concomitant]
     Active Substance: INSULIN GLARGINE
  6. LOSARTAN. [Concomitant]
     Active Substance: LOSARTAN
  7. METOPROLOL TARTRATE. [Concomitant]
     Active Substance: METOPROLOL TARTRATE
  8. METFORMIN [Concomitant]
     Active Substance: METFORMIN HYDROCHLORIDE
  9. FARXIGA [Suspect]
     Active Substance: DAPAGLIFLOZIN PROPANEDIOL
     Route: 048
     Dates: start: 20170919
  10. TYLENOL [Concomitant]
     Active Substance: ACETAMINOPHEN
  11. FARXIGA [Suspect]
     Active Substance: DAPAGLIFLOZIN PROPANEDIOL
     Route: 048
     Dates: start: 20180129
  12. GLIPIZIDE. [Concomitant]
     Active Substance: GLIPIZIDE
  13. FLUCONAZOLE. [Concomitant]
     Active Substance: FLUCONAZOLE
  14. PRAVASTATIN. [Concomitant]
     Active Substance: PRAVASTATIN
  15. GABAPENTIN. [Concomitant]
     Active Substance: GABAPENTIN
  16. CENTRUM SILVER [Concomitant]
     Active Substance: MINERALS\VITAMINS
  17. HYDROCHLOROTHIAZIDE. [Concomitant]
     Active Substance: HYDROCHLOROTHIAZIDE

REACTIONS (6)
  - Perforation [Fatal]
  - Subcutaneous abscess [Unknown]
  - Necrotising fasciitis [Fatal]
  - Sepsis [Fatal]
  - Septic shock [Unknown]
  - Intestinal ischaemia [Fatal]

NARRATIVE: CASE EVENT DATE: 20181213
